FAERS Safety Report 5901985-4 (Version None)
Quarter: 2008Q3

REPORT INFORMATION
  Report Type: 
  Country: None (occurrence: None)
  Receive Date: 20080925
  Receipt Date: 20080915
  Transmission Date: 20090109
  Serious: Yes (Disabling)
  Sender: FDA-Public Use
  Company Number: POMP-1000316

PATIENT
  Age: 46 Year
  Sex: Female
  Weight: 101 kg

DRUGS (12)
  1. MYOZYME [Suspect]
     Indication: GLYCOGEN STORAGE DISEASE TYPE II
     Dosage: 20 MG, Q2W, INTRAVENOUS
     Route: 042
     Dates: start: 20050801
  2. MYOZYME [Suspect]
  3. MYOZYME [Suspect]
  4. MYOZYME [Suspect]
  5. VICODIN [Concomitant]
  6. DARVOCET [Concomitant]
  7. IRON (IRON) [Concomitant]
  8. FENUGREEK [Concomitant]
  9. MULTIVITAMIN [Concomitant]
  10. SIBERIAN ROOT [Concomitant]
  11. ACIDOPHILUS (LACTOBACILLUS ACIDOPHILUS) [Concomitant]
  12. CETYL MYRISTOLEATE [Concomitant]

REACTIONS (4)
  - DISEASE PROGRESSION [None]
  - DRUG INEFFECTIVE [None]
  - MUSCULAR WEAKNESS [None]
  - URINARY TRACT INFECTION [None]
